FAERS Safety Report 17933524 (Version 1)
Quarter: 2020Q2

REPORT INFORMATION
  Report Type: Spontaneous
  Country: US (occurrence: US)
  Receive Date: 20200623
  Receipt Date: 20200623
  Transmission Date: 20200714
  Serious: No
  Sender: FDA-Public Use
  Company Number: None

PATIENT
  Age: 41 Year
  Sex: Male
  Weight: 91 kg

DRUGS (1)
  1. AMLODIPINE/ BENAZEPRIL (AMLODIPINE BESYLATE 10MG/BENAZEPRIL HCL 20MG [Suspect]
     Active Substance: AMLODIPINE BESYLATE\BENAZEPRIL HYDROCHLORIDE
     Indication: HYPERTENSION
     Route: 048
     Dates: start: 20150901, end: 20170215

REACTIONS (1)
  - Angioedema [None]

NARRATIVE: CASE EVENT DATE: 20170215
